FAERS Safety Report 17002829 (Version 2)
Quarter: 2019Q4

REPORT INFORMATION
  Report Type: Spontaneous
  Country: US (occurrence: US)
  Receive Date: 20191107
  Receipt Date: 20191113
  Transmission Date: 20200122
  Serious: Yes (Hospitalization)
  Sender: FDA-Public Use
  Company Number: US-ELI_LILLY_AND_COMPANY-US201911000566

PATIENT
  Sex: Female

DRUGS (1)
  1. TALTZ [Suspect]
     Active Substance: IXEKIZUMAB
     Indication: PRODUCT USED FOR UNKNOWN INDICATION
     Dosage: 160 MG, LOADING DOSE
     Route: 058

REACTIONS (6)
  - Sepsis [Unknown]
  - Pyrexia [Unknown]
  - Urinary tract infection [Unknown]
  - Chills [Unknown]
  - White blood cell count decreased [Unknown]
  - Renal disorder [Unknown]
